FAERS Safety Report 5053205-3 (Version None)
Quarter: 2006Q3

REPORT INFORMATION
  Report Type: 
  Country: None (occurrence: None)
  Receive Date: 20060712
  Receipt Date: 20060629
  Transmission Date: 20061208
  Serious: Yes (Other)
  Sender: FDA-Public Use
  Company Number: 2006082053

PATIENT
  Age: 5 Year
  Sex: Female
  Weight: 31.7518 kg

DRUGS (1)
  1. ZITHROMAX [Suspect]
     Indication: CYSTITIS
     Dates: start: 20000101

REACTIONS (3)
  - CYSTITIS [None]
  - DYSPNOEA [None]
  - WHEEZING [None]
